FAERS Safety Report 5716344-7 (Version None)
Quarter: 2008Q2

REPORT INFORMATION
  Report Type: 
  Country: None (occurrence: None)
  Receive Date: 20080424
  Receipt Date: 20080418
  Transmission Date: 20081010
  Serious: Yes (Other)
  Sender: FDA-Public Use
  Company Number: US-BRISTOL-MYERS SQUIBB COMPANY-14159917

PATIENT
  Sex: Female

DRUGS (8)
  1. ORENCIA [Suspect]
     Dosage: LAST INFUSION IS ON 21-MAR-2008
     Route: 051
     Dates: end: 20080101
  2. PROZAC [Concomitant]
     Indication: DEPRESSION
  3. TRAZODONE HCL [Concomitant]
     Indication: SLEEP DISORDER
  4. CELEBREX [Concomitant]
     Indication: OSTEOARTHRITIS
  5. SYNTHROID [Concomitant]
  6. IMURAN [Concomitant]
  7. PREMARIN [Concomitant]
     Indication: MENOPAUSAL SYMPTOMS
  8. TRAMADOL HCL [Concomitant]

REACTIONS (2)
  - PAIN [None]
  - PARAESTHESIA [None]
